FAERS Safety Report 5044615-9 (Version None)
Quarter: 2006Q2

REPORT INFORMATION
  Report Type: 
  Country: None (occurrence: None)
  Receive Date: 20060629
  Receipt Date: 20060614
  Transmission Date: 20061013
  Serious: Yes (Disabling, Other)
  Sender: FDA-Public Use
  Company Number: 2006-BP-06730RO

PATIENT
  Age: 69 Year
  Sex: Female

DRUGS (1)
  1. METHOTREXATE [Suspect]
     Indication: RHEUMATOID ARTHRITIS
     Dosage: 10 MG/WEEK (1 IN 1 WK)
     Dates: start: 20010101, end: 20030201

REACTIONS (5)
  - ABASIA [None]
  - DISEASE RECURRENCE [None]
  - MOUTH ULCERATION [None]
  - PAIN IN EXTREMITY [None]
  - TENDERNESS [None]
